FAERS Safety Report 14745489 (Version 3)
Quarter: 2019Q4

REPORT INFORMATION
  Report Type: Report from Study
  Country: CA (occurrence: CA)
  Receive Date: 20180411
  Receipt Date: 20191211
  Transmission Date: 20200122
  Serious: Yes (Hospitalization, Other)
  Sender: FDA-Public Use
  Company Number: CA-ROCHE-1507791

PATIENT
  Age: 81 Year
  Sex: Female

DRUGS (18)
  1. ASPIRIN. [Concomitant]
     Active Substance: ASPIRIN
  2. TYLENOL [Concomitant]
     Active Substance: ACETAMINOPHEN
  3. RITUXAN [Suspect]
     Active Substance: RITUXIMAB
     Indication: POLYMYOSITIS
     Dosage: LAST DOSE : 08/APR/2015?ON HOLD
     Route: 042
     Dates: start: 20120411
  4. ADALAT CC [Concomitant]
     Active Substance: NIFEDIPINE
  5. PLAVIX [Concomitant]
     Active Substance: CLOPIDOGREL BISULFATE
  6. CRESTOR [Suspect]
     Active Substance: ROSUVASTATIN CALCIUM
     Indication: PRODUCT USED FOR UNKNOWN INDICATION
     Route: 065
     Dates: end: 2016
  7. BISOPROLOL [Concomitant]
     Active Substance: BISOPROLOL
  8. PREDNISONE. [Suspect]
     Active Substance: PREDNISONE
     Indication: PRODUCT USED FOR UNKNOWN INDICATION
     Route: 065
  9. ACTONEL [Concomitant]
     Active Substance: RISEDRONATE SODIUM
  10. DIPHENHYDRAMINE HCL [Concomitant]
     Active Substance: DIPHENHYDRAMINE HYDROCHLORIDE
     Indication: PREMEDICATION
     Route: 048
     Dates: start: 20140409
  11. ACETAMINOPHEN. [Concomitant]
     Active Substance: ACETAMINOPHEN
     Indication: PREMEDICATION
     Route: 048
     Dates: start: 20140409
  12. METHYLPREDNISOLONE. [Concomitant]
     Active Substance: METHYLPREDNISOLONE
     Indication: PREMEDICATION
     Route: 042
  13. TECTA [Concomitant]
     Active Substance: PANTOPRAZOLE MAGNESIUM
  14. TICAGRELOR. [Suspect]
     Active Substance: TICAGRELOR
     Indication: PRODUCT USED FOR UNKNOWN INDICATION
     Route: 065
  15. CALCIUM CITRATE WITH VITAMIN D3 [Concomitant]
     Active Substance: CALCIUM CITRATE\CHOLECALCIFEROL
  16. ACTONEL [Concomitant]
     Active Substance: RISEDRONATE SODIUM
  17. PANTOPRAZOLE [Concomitant]
     Active Substance: PANTOPRAZOLE
  18. ASA [Concomitant]
     Active Substance: ASPIRIN

REACTIONS (17)
  - Hypotension [Unknown]
  - Influenza [Recovered/Resolved]
  - Coronary artery occlusion [Recovering/Resolving]
  - Nasal congestion [Not Recovered/Not Resolved]
  - Tooth loss [Unknown]
  - Diarrhoea [Unknown]
  - Myocardial infarction [Unknown]
  - Pneumonia [Unknown]
  - Basal cell carcinoma [Not Recovered/Not Resolved]
  - Balance disorder [Not Recovered/Not Resolved]
  - Off label use [Unknown]
  - Oxygen saturation decreased [Unknown]
  - General physical health deterioration [Not Recovered/Not Resolved]
  - Hypersensitivity [Recovered/Resolved]
  - Polymyositis [Not Recovered/Not Resolved]
  - Urinary tract infection [Not Recovered/Not Resolved]
  - Muscular weakness [Unknown]

NARRATIVE: CASE EVENT DATE: 20150409
